FAERS Safety Report 5332694-0 (Version None)
Quarter: 2007Q2

REPORT INFORMATION
  Report Type: 
  Country: None (occurrence: None)
  Receive Date: 20070523
  Receipt Date: 20070514
  Transmission Date: 20071010
  Serious: Yes (Other)
  Sender: FDA-Public Use
  Company Number: AU-PFIZER INC-2007035220

PATIENT
  Sex: Female

DRUGS (2)
  1. VIBRAMYCIN [Suspect]
     Indication: ROSACEA
     Route: 048
     Dates: start: 20060217, end: 20060401
  2. CELEBREX [Concomitant]

REACTIONS (3)
  - CORNEAL EROSION [None]
  - DRY EYE [None]
  - DRY MOUTH [None]
